FAERS Safety Report 24049277 (Version 2)
Quarter: 2024Q3

REPORT INFORMATION
  Report Type: Spontaneous
  Country: US (occurrence: US)
  Receive Date: 20240704
  Receipt Date: 20240727
  Transmission Date: 20241017
  Serious: Yes (Other)
  Sender: JOHNSON AND JOHNSON
  Company Number: US-JNJFOC-20240667339

PATIENT
  Age: 70 Year
  Sex: Male

DRUGS (6)
  1. ERLEADA [Suspect]
     Active Substance: APALUTAMIDE
     Indication: Prostate cancer
     Route: 048
     Dates: end: 20240617
  2. ABIRATERONE ACETATE [Suspect]
     Active Substance: ABIRATERONE ACETATE
     Indication: Product used for unknown indication
     Route: 048
     Dates: start: 20240618
  3. ORGOVYX [Suspect]
     Active Substance: RELUGOLIX
     Indication: Neoplasm malignant
     Dosage: ORGOVYX, 120 MILLIGRAMS DAILY VIA ORAL ROUTE ON AN UNKNOWN DATE (ON 13-APR-2023 WITH BIOLOGICS)
     Route: 048
  4. ORGOVYX [Suspect]
     Active Substance: RELUGOLIX
     Dosage: ORGOVYX, 120 MILLIGRAMS DAILY VIA ORAL ROUTE ON AN UNKNOWN DATE (ON 13-APR-2023 WITH BIOLOGICS)
     Route: 048
  5. ORGOVYX [Suspect]
     Active Substance: RELUGOLIX
     Dosage: ORGOVYX, 120 MILLIGRAMS DAILY VIA ORAL ROUTE ON AN UNKNOWN DATE (ON 13-APR-2023 WITH BIOLOGICS)
     Route: 048
  6. PREDNISONE [Concomitant]
     Active Substance: PREDNISONE
     Route: 050
     Dates: start: 20240618

REACTIONS (9)
  - Surgery [Unknown]
  - Metastasis [Unknown]
  - Hypersensitivity [Recovered/Resolved]
  - Decreased interest [Unknown]
  - Chills [Unknown]
  - Rash pruritic [Not Recovered/Not Resolved]
  - Hyperhidrosis [Unknown]
  - Fatigue [Unknown]
  - Incorrect dose administered [Unknown]
